FAERS Safety Report 5988365-0 (Version None)
Quarter: 2008Q4

REPORT INFORMATION
  Report Type: 
  Country: None (occurrence: None)
  Receive Date: 20081204
  Receipt Date: 20081120
  Transmission Date: 20090506
  Serious: Yes (Death)
  Sender: FDA-Public Use
  Company Number: KV200800519

PATIENT
  Age: 71 Year
  Sex: Male

DRUGS (3)
  1. MORPHINE SULFATE [Suspect]
     Indication: PAIN
     Dosage: 15MG, BID, ORAL
     Route: 048
     Dates: start: 20080601
  2. UNKNOWN THYROID MEDICATION [Concomitant]
  3. UNKNOWN NAUSEA MEDICTION [Concomitant]

REACTIONS (5)
  - DIZZINESS [None]
  - HALLUCINATION [None]
  - MALIGNANT NEOPLASM PROGRESSION [None]
  - PRODUCT QUALITY ISSUE [None]
  - SOMNOLENCE [None]
